FAERS Safety Report 9252541 (Version 1)
Quarter: 2013Q1

REPORT INFORMATION
  Report Type: Spontaneous
  Country: US (occurrence: None)
  Receive Date: 20130305
  Receipt Date: 20130305
  Transmission Date: 20140127
  Serious: Yes (Other)
  Sender: FDA-Public Use
  Company Number: 163-21880-12082078

PATIENT
  Age: 64 Year
  Sex: Male
  Weight: 71.67 kg

DRUGS (13)
  1. REVLIMID [Suspect]
     Indication: PLASMA CELL MYELOMA
     Dosage: 16.6667 MG, 14 IN 21 D, PO
     Dates: start: 20120407
  2. ALLOPURINOL [Concomitant]
  3. ATIVAN (LORAZEPAM) [Concomitant]
  4. BACTRIM (BACTRIM) [Concomitant]
  5. CALCIUM (CALCIUM) [Concomitant]
  6. DEXAMETHASONE (DEXAMETHASONE) [Concomitant]
  7. MULTIVITAMIN (MULTIVITAMINS) [Concomitant]
  8. OXYCODONE (OXYCODONE) [Concomitant]
  9. SENOKOT (SENNA FRUIT) [Concomitant]
  10. SYMBICORT (SYMBICORT TURBUHALER ^DRACO^) [Concomitant]
  11. VALTREX (VALACICLOVIR HYDROCHLORIDE) [Concomitant]
  12. VITAMIN D (ERGOCALCIFEROL) [Concomitant]
  13. ZOFRAN (ONDANSETRON HYDROCHLORIDE) [Concomitant]

REACTIONS (5)
  - Weight decreased [None]
  - Abdominal pain upper [None]
  - Diarrhoea [None]
  - Decreased appetite [None]
  - Constipation [None]
